FAERS Safety Report 10095155 (Version 2)
Quarter: 2014Q2

REPORT INFORMATION
  Report Type: Spontaneous
  Country: US (occurrence: US)
  Receive Date: 20140422
  Receipt Date: 20140422
  Transmission Date: 20141212
  Serious: No
  Sender: FDA-Public Use
  Company Number: US-GILEAD-2012-0057216

PATIENT
  Sex: Female

DRUGS (5)
  1. LETAIRIS [Suspect]
     Indication: PRODUCT USED FOR UNKNOWN INDICATION
     Dosage: 5 MG, UNK
     Route: 048
     Dates: start: 20120229
  2. ADCIRCA [Concomitant]
  3. TYVASO [Concomitant]
  4. COUMADIN                           /00014802/ [Concomitant]
  5. LASIX                              /00032601/ [Concomitant]

REACTIONS (1)
  - Syncope [Recovered/Resolved]
